FAERS Safety Report 23441830 (Version 1)
Quarter: 2024Q1

REPORT INFORMATION
  Report Type: Spontaneous
  Country: CA (occurrence: CA)
  Receive Date: 20240125
  Receipt Date: 20240125
  Transmission Date: 20240410
  Serious: Yes (Life-Threatening, Other)
  Sender: FDA-Public Use
  Company Number: CA-AUROBINDO-AUR-APL-2023-034336

PATIENT
  Age: 43 Year
  Sex: Male

DRUGS (19)
  1. QUETIAPINE [Suspect]
     Active Substance: QUETIAPINE
     Indication: Bipolar disorder
     Dosage: 300 MILLIGRAM, AT BED TIME
     Route: 065
  2. QUETIAPINE [Suspect]
     Active Substance: QUETIAPINE
     Dosage: 25MG TO 50MG ONCE A DAILY PRN
     Route: 065
  3. QUETIAPINE [Suspect]
     Active Substance: QUETIAPINE
     Dosage: 50 MILLIGRAM, 3 TIMES A DAY
     Route: 065
  4. VENLAFAXINE [Suspect]
     Active Substance: VENLAFAXINE HYDROCHLORIDE
     Indication: Bipolar disorder
     Dosage: 262.5 MILLIGRAM
     Route: 065
  5. BUPROPION [Suspect]
     Active Substance: BUPROPION
     Indication: Bipolar disorder
     Dosage: 150 MILLIGRAM, ONCE A DAY
     Route: 065
  6. CLONAZEPAM [Suspect]
     Active Substance: CLONAZEPAM
     Indication: Bipolar disorder
     Dosage: 1 MILLIGRAM, ONCE A DAY, (BEFORE NOON)
     Route: 065
  7. CLONAZEPAM [Suspect]
     Active Substance: CLONAZEPAM
     Indication: Anxiety
     Dosage: 2 MILLIGRAM, AT BED TIME
     Route: 065
  8. CLONAZEPAM [Suspect]
     Active Substance: CLONAZEPAM
     Indication: Anxiety disorder
     Dosage: 3 MILLIGRAM, ONCE A DAY
     Route: 065
  9. CLONAZEPAM [Suspect]
     Active Substance: CLONAZEPAM
     Dosage: 0.25?0.5MG AT BEDTIME
     Route: 065
  10. CLONAZEPAM [Suspect]
     Active Substance: CLONAZEPAM
     Dosage: 1.5 MILLIGRAM
     Route: 065
  11. CLONAZEPAM [Suspect]
     Active Substance: CLONAZEPAM
     Dosage: UNK, ONCE A DAY
     Route: 065
  12. CLONAZEPAM [Suspect]
     Active Substance: CLONAZEPAM
     Dosage: 0.5 MILLIGRAM
     Route: 065
  13. VENLAFAXINE [Suspect]
     Active Substance: VENLAFAXINE HYDROCHLORIDE
     Indication: Bipolar disorder
     Dosage: 262.5 MILLIGRAM
     Route: 065
  14. ZOLPIDEM [Suspect]
     Active Substance: ZOLPIDEM TARTRATE
     Indication: Bipolar disorder
     Dosage: 10 MILLIGRAM, AT BED TIME, (TABLET DISINTEGRATED)
     Route: 065
  15. KETAMINE [Concomitant]
     Active Substance: KETAMINE
     Indication: Product used for unknown indication
     Dosage: 0.5 MILLIGRAM/KILOGRAM OVER 60 MIN FOR 2 WEEKS
     Route: 042
     Dates: start: 202101
  16. KETAMINE [Concomitant]
     Active Substance: KETAMINE
     Dosage: 0.5 MILLIGRAM/KILOGRAM ONCE A WEEK FOR 6WEEKS AND THEN ONCE EVERY 2 WEEKS
     Route: 030
  17. PRAMIPEXOLE [Concomitant]
     Active Substance: PRAMIPEXOLE\PRAMIPEXOLE DIHYDROCHLORIDE
     Indication: Restless legs syndrome
     Dosage: 0.25 MILLIGRAM
     Route: 065
  18. PRAMIPEXOLE [Concomitant]
     Active Substance: PRAMIPEXOLE\PRAMIPEXOLE DIHYDROCHLORIDE
     Dosage: LOW DOSE
     Route: 065
  19. TRAZODONE [Suspect]
     Active Substance: TRAZODONE HYDROCHLORIDE
     Indication: Bipolar disorder
     Dosage: UNK
     Route: 065

REACTIONS (3)
  - Therapy non-responder [Unknown]
  - Drug ineffective [Unknown]
  - Off label use [Unknown]
